FAERS Safety Report 9351654 (Version 9)
Quarter: 2013Q4

REPORT INFORMATION
  Report Type: Report from Study
  Country: AU (occurrence: AU)
  Receive Date: 20130617
  Receipt Date: 20131031
  Transmission Date: 20140711
  Serious: Yes (Hospitalization)
  Sender: FDA-Public Use
  Company Number: AU-ROCHE-1212081

PATIENT
  Age: 45 Year
  Sex: Male
  Weight: 98 kg

DRUGS (14)
  1. VISMODEGIB [Suspect]
     Indication: BASAL CELL CARCINOMA
     Dosage: DATE OF LAST DOSE PRIOR TO ONSET OF ACUTE SINUSITIS: 27/MAR/2013.?DATE OF LAST DOSE PRIOR TO ACUTE S
     Route: 048
     Dates: start: 20121213
  2. KEFLEX [Concomitant]
     Indication: CELLULITIS
     Route: 065
     Dates: start: 20130703, end: 20130713
  3. ASPIRIN [Concomitant]
     Indication: CEREBROVASCULAR ACCIDENT
     Route: 065
     Dates: start: 200412
  4. DUROGESIC D TRANS [Concomitant]
     Indication: PAIN
     Route: 062
     Dates: end: 201210
  5. ZOLOFT [Concomitant]
     Indication: DEPRESSION
     Route: 065
     Dates: start: 200712, end: 20130501
  6. ZOLOFT [Concomitant]
     Indication: MOOD SWINGS
     Route: 065
     Dates: start: 20130501, end: 20131016
  7. ZOLOFT [Concomitant]
     Route: 065
     Dates: start: 20131016
  8. PANADOL [Concomitant]
     Indication: MOOD SWINGS
     Route: 065
     Dates: end: 20130306
  9. PANADOL [Concomitant]
     Route: 065
     Dates: start: 20130306
  10. CLINDATECH [Concomitant]
     Indication: FOLLICULITIS
     Route: 065
     Dates: start: 20130724
  11. VITAMIN B COMPLEX [Concomitant]
     Indication: MUSCLE SPASMS
     Route: 065
     Dates: start: 20130724
  12. OXYNORM [Concomitant]
     Indication: MOOD SWINGS
     Route: 065
     Dates: end: 20130306
  13. OXYNORM [Concomitant]
     Route: 065
     Dates: start: 20130306
  14. ADVANTAN OINTMENT [Concomitant]
     Indication: AURICULAR PERICHONDRITIS
     Route: 061
     Dates: start: 20130708

REACTIONS (1)
  - Acute sinusitis [Recovered/Resolved]
